FAERS Safety Report 18602013 (Version 1)
Quarter: 2020Q4

REPORT INFORMATION
  Report Type: Report from Study
  Country: US (occurrence: US)
  Receive Date: 20201210
  Receipt Date: 20201210
  Transmission Date: 20210114
  Serious: Yes (Hospitalization, Other)
  Sender: FDA-Public Use
  Company Number: US-TEVA-231316USA

PATIENT
  Age: 64 Year
  Sex: Male

DRUGS (10)
  1. COPAXONE [Suspect]
     Active Substance: GLATIRAMER ACETATE
     Indication: MULTIPLE SCLEROSIS
     Dosage: 20 MILLIGRAM DAILY;
     Route: 058
     Dates: start: 20100428
  2. NASONEX [Concomitant]
     Active Substance: MOMETASONE FUROATE
  3. PRILOSEC [Concomitant]
     Active Substance: OMEPRAZOLE MAGNESIUM
  4. COPAXONE [Suspect]
     Active Substance: GLATIRAMER ACETATE
     Dosage: 20 MILLIGRAM DAILY;
     Route: 058
     Dates: start: 19990920, end: 20100414
  5. ZYPREXA [Concomitant]
     Active Substance: OLANZAPINE
  6. PREDNISONE. [Concomitant]
     Active Substance: PREDNISONE
  7. CLONAZEPAM. [Concomitant]
     Active Substance: CLONAZEPAM
  8. DETROL [Concomitant]
     Active Substance: TOLTERODINE TARTRATE
  9. CELEXA [Concomitant]
     Active Substance: CITALOPRAM HYDROBROMIDE
  10. LIPITOR [Concomitant]
     Active Substance: ATORVASTATIN CALCIUM

REACTIONS (15)
  - Pneumonia [Unknown]
  - Multiple sclerosis [Unknown]
  - Dyspnoea [Unknown]
  - Lymphadenopathy mediastinal [Recovering/Resolving]
  - Chronic obstructive pulmonary disease [Recovering/Resolving]
  - Pulmonary embolism [Unknown]
  - Dizziness [Unknown]
  - Wheelchair user [Unknown]
  - Hilar lymphadenopathy [Recovering/Resolving]
  - Pyrexia [Unknown]
  - Pneumonitis [Recovering/Resolving]
  - Eosinophilic granulomatosis with polyangiitis [Unknown]
  - Infection [Recovering/Resolving]
  - Pneumonia aspiration [Unknown]
  - Fall [Unknown]

NARRATIVE: CASE EVENT DATE: 20100402
